FAERS Safety Report 4691995-X (Version None)
Quarter: 2005Q2

REPORT INFORMATION
  Report Type: 
  Country: None (occurrence: None)
  Receive Date: 20050614
  Receipt Date: 20050607
  Transmission Date: 20051028
  Serious: Yes (Other)
  Sender: FDA-Public Use
  Company Number: 200512379BCC

PATIENT
  Age: 63 Year
  Sex: Female
  Weight: 91.6266 kg

DRUGS (2)
  1. ASPIRIN [Suspect]
     Indication: CARDIAC DISORDER
     Dosage: 81 MG, QD, ORAL
     Route: 048
     Dates: start: 20030101, end: 20050601
  2. ASPIRIN [Suspect]
     Indication: PROPHYLAXIS
     Dosage: 81 MG, QD, ORAL
     Route: 048
     Dates: start: 20030101, end: 20050601

REACTIONS (1)
  - DEAFNESS [None]
